FAERS Safety Report 5004025-7 (Version None)
Quarter: 2006Q2

REPORT INFORMATION
  Report Type: 
  Country: None (occurrence: None)
  Receive Date: 20060517
  Receipt Date: 20060509
  Transmission Date: 20061013
  Serious: Yes (Other)
  Sender: FDA-Public Use
  Company Number: US-JNJFOC-20060403347

PATIENT
  Sex: Male
  Weight: 103.42 kg

DRUGS (8)
  1. REMICADE [Suspect]
     Dosage: TOTAL 500 MG
     Route: 042
  2. REMICADE [Suspect]
     Dosage: TOTAL 500 MG
     Route: 042
  3. REMICADE [Suspect]
     Dosage: TOTAL 500 MG
     Route: 042
  4. REMICADE [Suspect]
     Dosage: TOTAL 500 MG
     Route: 042
  5. REMICADE [Suspect]
     Dosage: TOTAL 500 MG
     Route: 042
  6. REMICADE [Suspect]
     Indication: SPONDYLOARTHROPATHY
     Dosage: TOTAL 500 MG
     Route: 042
  7. PREDNISONE TAB [Concomitant]
     Indication: SPONDYLOARTHROPATHY
     Dosage: DOSE 5-10MG/DAY
  8. IBUPROFEN [Concomitant]
     Indication: SPONDYLOARTHROPATHY
     Dosage: DOSE 600-1200MG/DAY

REACTIONS (1)
  - HEPATITIS CHRONIC ACTIVE [None]
